FAERS Safety Report 8556614-0 (Version None)
Quarter: 2012Q3

REPORT INFORMATION
  Report Type: 
  Country: None (occurrence: None)
  Receive Date: 20120719
  Receipt Date: 20120706
  Transmission Date: 20120928
  Serious: Yes (Death, Hospitalization)
  Sender: FDA-Public Use
  Company Number: DSU-2012-05465

PATIENT
  Age: 64 Year
  Sex: Male

DRUGS (3)
  1. OLMESARTAN MEDOXOMIL [Suspect]
     Indication: BLOOD PRESSURE
     Dosage: 40 MG (40 MG, QD), PER ORAL
     Route: 048
     Dates: start: 20100208
  2. LIPITOR [Suspect]
     Indication: BLOOD CHOLESTEROL
     Dosage: 20 MG (20 MG, QD), PER ORAL
     Route: 048
     Dates: start: 20100210
  3. NORVASC [Suspect]
     Indication: BLOOD PRESSURE
     Dosage: 5 MG (5 MG, QD) PER ORAL
     Route: 048
     Dates: start: 19981220

REACTIONS (1)
  - RENAL CANCER [None]
